FAERS Safety Report 19815093 (Version 1)
Quarter: 2021Q3

REPORT INFORMATION
  Report Type: Spontaneous
  Country: US (occurrence: US)
  Receive Date: 20210910
  Receipt Date: 20210910
  Transmission Date: 20211014
  Serious: No
  Sender: FDA-Public Use
  Company Number: None

PATIENT
  Age: 58 Year
  Sex: Female
  Weight: 112 kg

DRUGS (2)
  1. CASIRIVIMAB (INV?CASIRIVIMAB 120MG/ML INJ,SOLN) [Suspect]
     Active Substance: CASIRIVIMAB
     Indication: COVID-19
     Route: 042
     Dates: start: 20210903, end: 20210903
  2. IMDEVIMAB (INV?IMDEVIMAB 120MG/ML INJ,SOLN) [Suspect]
     Active Substance: IMDEVIMAB
     Indication: COVID-19
     Route: 042
     Dates: start: 20210903, end: 20210903

REACTIONS (6)
  - Infusion related reaction [None]
  - Rales [None]
  - Respiratory depression [None]
  - Hypoxia [None]
  - Oxygen saturation decreased [None]
  - Dyspnoea [None]

NARRATIVE: CASE EVENT DATE: 20210903
